FAERS Safety Report 9771199 (Version 1)
Quarter: 2013Q4

REPORT INFORMATION
  Report Type: Spontaneous
  Country: ES (occurrence: ES)
  Receive Date: 20131218
  Receipt Date: 20131218
  Transmission Date: 20140711
  Serious: Yes (Other)
  Sender: FDA-Public Use
  Company Number: ES-B.I. PHARMACEUTICALS,INC./RIDGEFIELD-2013-BI-41751ES

PATIENT
  Age: 77 Year
  Sex: Male

DRUGS (2)
  1. TRAJENTA [Suspect]
     Indication: TYPE 2 DIABETES MELLITUS
  2. SILODOSINA [Concomitant]
     Indication: PROSTATOMEGALY

REACTIONS (1)
  - Myocardial infarction [Unknown]
